FAERS Safety Report 4924046-X (Version None)
Quarter: 2006Q1

REPORT INFORMATION
  Report Type: 
  Country: None (occurrence: None)
  Receive Date: 20060227
  Receipt Date: 20060216
  Transmission Date: 20060701
  Serious: Yes (Hospitalization)
  Sender: FDA-Public Use
  Company Number: 2006PK00388

PATIENT
  Age: 79 Year
  Sex: Female

DRUGS (7)
  1. TENORMIN [Interacting]
     Route: 048
  2. DIAMICRON [Interacting]
     Dates: start: 20060201
  3. GLUCOPHAGE [Suspect]
     Route: 048
     Dates: start: 20060201
  4. ASPIRIN [Interacting]
     Route: 048
  5. DIGOXIN [Concomitant]
     Dosage: FIVE TIMES A WEEK
     Route: 048
  6. TORSEMIDE [Concomitant]
     Route: 048
  7. PRAVASTATIN [Concomitant]
     Route: 048

REACTIONS (4)
  - CONFUSIONAL STATE [None]
  - DRUG INTERACTION [None]
  - HYPOGLYCAEMIA [None]
  - ORAL INTAKE REDUCED [None]
